FAERS Safety Report 4632377-6 (Version None)
Quarter: 2005Q2

REPORT INFORMATION
  Report Type: 
  Country: None (occurrence: None)
  Receive Date: 20050411
  Receipt Date: 20050318
  Transmission Date: 20051028
  Serious: Yes (Other)
  Sender: FDA-Public Use
  Company Number: FR-GLAXOSMITHKLINE-B0375285A

PATIENT
  Age: 11 Year
  Sex: Male
  Weight: 31 kg

DRUGS (7)
  1. AUGMENTIN '125' [Suspect]
     Indication: APPENDICITIS
     Dosage: 500MG PER DAY
     Route: 042
     Dates: start: 20050228, end: 20050228
  2. NIFLURIL [Concomitant]
     Indication: INFLAMMATION
     Dosage: 400MG UNKNOWN
     Route: 054
  3. CODENFAN [Concomitant]
     Indication: PAIN
     Route: 048
     Dates: start: 20050228, end: 20050301
  4. PERFALGAN [Concomitant]
     Indication: POSTOPERATIVE ANALGESIA
     Route: 042
     Dates: start: 20050228, end: 20050228
  5. PROFENID [Concomitant]
     Route: 042
     Dates: start: 20050228, end: 20050228
  6. NAROPIN [Concomitant]
     Route: 042
     Dates: start: 20050228, end: 20050228
  7. PERFUSION GLUCOSE 5 % [Concomitant]
     Dosage: 1BAG PER DAY
     Route: 042

REACTIONS (10)
  - ANAPHYLACTIC REACTION [None]
  - EOSINOPHIL PERCENTAGE ABNORMAL [None]
  - EOSINOPHIL PERCENTAGE INCREASED [None]
  - LYMPHOCYTE COUNT ABNORMAL [None]
  - LYMPHOCYTE COUNT DECREASED [None]
  - PHARMACEUTICAL PRODUCT COMPLAINT [None]
  - PRURITUS [None]
  - RASH ERYTHEMATOUS [None]
  - RASH GENERALISED [None]
  - URTICARIA [None]
